FAERS Safety Report 20862166 (Version 1)
Quarter: 2022Q2

REPORT INFORMATION
  Report Type: Spontaneous
  Country: US (occurrence: US)
  Receive Date: 20220523
  Receipt Date: 20220523
  Transmission Date: 20220721
  Serious: No
  Sender: FDA-Public Use
  Company Number: US-BRISTOL-MYERS SQUIBB COMPANY-2022-013997

PATIENT
  Age: 81 Year
  Sex: Female

DRUGS (1)
  1. POMALYST [Suspect]
     Active Substance: POMALIDOMIDE
     Indication: Laboratory test abnormal
     Dosage: TAKE I CAPSULE BY MOUTH EVERY DAY FOR 14 DAYS OUT OF A 28DAYS CYCLE
     Route: 048

REACTIONS (1)
  - Muscle spasms [Unknown]
